FAERS Safety Report 23665940 (Version 1)
Quarter: 2024Q1

REPORT INFORMATION
  Report Type: Spontaneous
  Country: FR (occurrence: FR)
  Receive Date: 20240323
  Receipt Date: 20240323
  Transmission Date: 20240409
  Serious: Yes (Life-Threatening)
  Sender: FDA-Public Use
  Company Number: None

PATIENT
  Age: 5 Day
  Sex: Male
  Weight: 2.96 kg

DRUGS (2)
  1. TEGRETOL XR [Suspect]
     Active Substance: CARBAMAZEPINE
     Indication: Epilepsy
     Dosage: UNK, (10 MG/KG 3 FOIS PAR_JOUR) (FORMULATION: ORAL SUSPENSION)
     Route: 048
     Dates: start: 20240124, end: 20240128
  2. PHENOBARBITAL [Suspect]
     Active Substance: PHENOBARBITAL
     Indication: Epilepsy
     Dosage: UNK, (2*20 MG/KG PAR_JOUR) (FORMULATION:LYOPHILISATE AND SOLUTION FOR PARENTERAL USE)
     Route: 048
     Dates: start: 20240123, end: 20240123

REACTIONS (1)
  - Necrotising colitis [Recovered/Resolved]

NARRATIVE: CASE EVENT DATE: 20240127
